FAERS Safety Report 25153787 (Version 2)
Quarter: 2025Q2

REPORT INFORMATION
  Report Type: Spontaneous
  Country: JP (occurrence: JP)
  Receive Date: 20250403
  Receipt Date: 20250421
  Transmission Date: 20250716
  Serious: Yes (Death)
  Sender: ROCHE
  Company Number: JP-CHUGAI-2025010455

PATIENT
  Age: 62 Year
  Sex: Male
  Weight: 64.2 kg

DRUGS (9)
  1. AVASTIN [Suspect]
     Active Substance: BEVACIZUMAB
     Indication: Hepatocellular carcinoma
     Dosage: 400 MILLIGRAM, ONCE/3WEEKS
     Route: 042
     Dates: start: 20250217, end: 20250217
  2. TECENTRIQ [Suspect]
     Active Substance: ATEZOLIZUMAB
     Indication: Hepatocellular carcinoma
     Dosage: UNK
     Route: 042
     Dates: start: 20250217, end: 20250217
  3. EDOXABAN TOSYLATE [Suspect]
     Active Substance: EDOXABAN TOSYLATE
     Indication: Pulmonary embolism
     Route: 048
     Dates: start: 20250210
  4. EDOXABAN TOSYLATE [Suspect]
     Active Substance: EDOXABAN TOSYLATE
     Route: 048
     Dates: end: 20250222
  5. RIFAXIMIN [Suspect]
     Active Substance: RIFAXIMIN
     Indication: Product used for unknown indication
     Route: 048
     Dates: start: 20250117, end: 20250306
  6. LANSOPRAZOLE [Concomitant]
     Active Substance: LANSOPRAZOLE
     Route: 048
     Dates: start: 20250117
  7. ENTECAVIR [Concomitant]
     Active Substance: ENTECAVIR
     Route: 048
     Dates: start: 20250214
  8. LIVACT [ISOLEUCINE;LEUCINE;VALINE] [Concomitant]
     Route: 048
     Dates: start: 20250218
  9. FEBUXOSTAT [Concomitant]
     Active Substance: FEBUXOSTAT
     Route: 048
     Dates: start: 20250214

REACTIONS (2)
  - Cerebral haemorrhage [Fatal]
  - Headache [Recovering/Resolving]

NARRATIVE: CASE EVENT DATE: 20250220
